FAERS Safety Report 7810203-1 (Version None)
Quarter: 2011Q4

REPORT INFORMATION
  Report Type: 
  Country: None (occurrence: None)
  Receive Date: 20111012
  Receipt Date: 20110929
  Transmission Date: 20120403
  Serious: Yes (Hospitalization)
  Sender: FDA-Public Use
  Company Number: FR-MYLANLABS-2011S1020694

PATIENT
  Age: 64 Year
  Sex: Female

DRUGS (2)
  1. ASPIRIN [Suspect]
     Route: 065
  2. METFORMIN HYDROCHLORIDE [Suspect]
     Dosage: 3000MG DAILY
     Route: 065

REACTIONS (4)
  - RESPIRATORY DISORDER [None]
  - RENAL FAILURE ACUTE [None]
  - LACTIC ACIDOSIS [None]
  - CARDIOVASCULAR DISORDER [None]
